FAERS Safety Report 14528873 (Version 2)
Quarter: 2018Q1

REPORT INFORMATION
  Report Type: Spontaneous
  Country: IT (occurrence: IT)
  Receive Date: 20180214
  Receipt Date: 20180305
  Transmission Date: 20180509
  Serious: Yes (Life-Threatening)
  Sender: FDA-Public Use
  Company Number: IT-ACCORD-063561

PATIENT
  Age: 24 Year
  Sex: Female

DRUGS (2)
  1. ARIPIPRAZOLE. [Suspect]
     Active Substance: ARIPIPRAZOLE
     Dosage: DRUG ABUSE
     Route: 048
     Dates: start: 20171222, end: 20171222
  2. LORAZEPAM. [Suspect]
     Active Substance: LORAZEPAM
     Dosage: DRUG ABUSE
     Route: 048
     Dates: start: 20171222, end: 20171222

REACTIONS (4)
  - Hypothermia [Unknown]
  - Vomiting [Unknown]
  - Drug abuse [Unknown]
  - Loss of consciousness [Unknown]

NARRATIVE: CASE EVENT DATE: 20171222
